FAERS Safety Report 8129482-9 (Version None)
Quarter: 2012Q1

REPORT INFORMATION
  Report Type: 
  Country: None (occurrence: None)
  Receive Date: 20120210
  Receipt Date: 20120203
  Transmission Date: 20120608
  Serious: Yes (Other)
  Sender: FDA-Public Use
  Company Number: US-MYLANLABS-2012S1002527

PATIENT
  Age: 42 Year
  Sex: Female

DRUGS (1)
  1. ALBUTEROL SULFATE [Suspect]
     Indication: DRY EYE
     Route: 047
     Dates: start: 20120120, end: 20120120

REACTIONS (6)
  - INCORRECT ROUTE OF DRUG ADMINISTRATION [None]
  - BLINDNESS TRANSIENT [None]
  - WRONG DRUG ADMINISTERED [None]
  - VISION BLURRED [None]
  - DRY EYE [None]
  - EYE IRRITATION [None]
